FAERS Safety Report 7156610-4 (Version None)
Quarter: 2010Q4

REPORT INFORMATION
  Report Type: 
  Country: None (occurrence: None)
  Receive Date: 20101214
  Receipt Date: 20091224
  Transmission Date: 20110411
  Serious: No
  Sender: FDA-Public Use
  Company Number: US-ASTRAZENECA-2009SE21547

PATIENT
  Age: 836 Month
  Sex: Female
  Weight: 65.8 kg

DRUGS (10)
  1. CRESTOR [Suspect]
     Route: 048
     Dates: start: 20090813
  2. IRON [Suspect]
  3. GLUCOTROL XL [Concomitant]
     Indication: DIABETES MELLITUS
  4. AVAPRO [Concomitant]
     Indication: BLOOD PRESSURE
  5. ATENOLOL [Concomitant]
     Indication: BLOOD PRESSURE
  6. PLAVIX [Concomitant]
     Indication: PLATELET DISORDER
  7. ASPIRIN [Concomitant]
     Indication: PLATELET DISORDER
  8. M.V.I. [Concomitant]
  9. HYDROCODONE BITARTRATE + ACETAMINOPHEN [Concomitant]
     Indication: BACK PAIN
     Dosage: 5/500 DAILY
  10. PRAVACHOL [Concomitant]

REACTIONS (7)
  - ABDOMINAL PAIN [None]
  - FATIGUE [None]
  - HAEMOGLOBIN DECREASED [None]
  - MUSCLE SPASMS [None]
  - NIGHT SWEATS [None]
  - PAIN IN EXTREMITY [None]
  - THROMBOSIS [None]
